FAERS Safety Report 9832039 (Version 2)
Quarter: 2014Q1

REPORT INFORMATION
  Report Type: Spontaneous
  Country: IT (occurrence: IT)
  Receive Date: 20140121
  Receipt Date: 20140127
  Transmission Date: 20141002
  Serious: Yes (Hospitalization)
  Sender: FDA-Public Use
  Company Number: PHHY2014IT005266

PATIENT
  Sex: Female

DRUGS (9)
  1. VOLTAREN [Suspect]
     Indication: BACK PAIN
     Dosage: UNK UKN, UNK
     Route: 030
     Dates: start: 20131015, end: 20131028
  2. LOSAZID [Suspect]
     Indication: HYPERTENSION
     Dosage: 1 DF, DAILY
     Route: 048
     Dates: start: 20120101, end: 20131028
  3. ATORVASTATIN [Concomitant]
     Indication: DYSLIPIDAEMIA
     Dosage: 20 MG, UNK
     Route: 048
     Dates: start: 20120101, end: 20131028
  4. LASIX [Concomitant]
     Indication: HYPERTENSION
     Dosage: 25 MG, UNK
     Route: 048
     Dates: start: 20120101, end: 20131028
  5. CARDIOASPIRIN [Concomitant]
     Indication: ANGIOPATHY
     Dosage: 100 MG, UNK
     Route: 048
     Dates: start: 20120101, end: 20131028
  6. FERRO GRAD C [Concomitant]
     Indication: ANAEMIA
     Dosage: 105/100 MG
     Route: 048
     Dates: start: 20120101, end: 20131028
  7. PANTOPRAZOLE [Concomitant]
     Dosage: 1 DF, UNK
     Route: 048
     Dates: start: 20120101, end: 20131028
  8. NITROGLYCERIN [Concomitant]
     Indication: CONGESTIVE CARDIOMYOPATHY
     Dosage: 5 MG, UNK
     Route: 062
     Dates: start: 20120101, end: 20131028
  9. BISOPROLOL [Concomitant]
     Indication: HYPERTENSION
     Dosage: 2.5 MG, UNK
     Route: 048
     Dates: start: 20120101, end: 20131028

REACTIONS (2)
  - Hyperkalaemia [Unknown]
  - Renal failure acute [Unknown]
